FAERS Safety Report 12477046 (Version 2)
Quarter: 2016Q3

REPORT INFORMATION
  Report Type: Spontaneous
  Country: SI (occurrence: SI)
  Receive Date: 20160617
  Receipt Date: 20160728
  Transmission Date: 20161109
  Serious: Yes (Hospitalization)
  Sender: FDA-Public Use
  Company Number: PHHY2016SI081254

PATIENT
  Sex: Female

DRUGS (1)
  1. RISPOLUX [Suspect]
     Active Substance: RISPERIDONE
     Indication: PRODUCT USED FOR UNKNOWN INDICATION
     Dosage: 0.25 MG, UNK
     Route: 065

REACTIONS (3)
  - Dementia [Unknown]
  - Restlessness [Recovered/Resolved]
  - Hallucination [Recovered/Resolved]
